FAERS Safety Report 12999333 (Version 2)
Quarter: 2016Q4

REPORT INFORMATION
  Report Type: Spontaneous
  Country: US (occurrence: US)
  Receive Date: 20161205
  Receipt Date: 20161214
  Transmission Date: 20170207
  Serious: Yes (Life-Threatening, Hospitalization)
  Sender: FDA-Public Use
  Company Number: US-JNJFOC-20161203251

PATIENT
  Age: 18 Year
  Sex: Male
  Weight: 103.42 kg

DRUGS (5)
  1. REMICADE [Suspect]
     Active Substance: INFLIXIMAB
     Indication: CROHN^S DISEASE
     Route: 042
     Dates: start: 20130122
  2. VITAMIN D [Concomitant]
     Active Substance: CHOLECALCIFEROL
     Indication: VITAMIN D DEFICIENCY
     Route: 065
  3. ASA [Concomitant]
     Active Substance: ASPIRIN
     Indication: THROMBOSIS
     Route: 065
  4. IMURAN [Suspect]
     Active Substance: AZATHIOPRINE
     Indication: CROHN^S DISEASE
     Route: 048
     Dates: start: 201402
  5. VITA B12 [Concomitant]
     Indication: VITAMIN B12 DEFICIENCY
     Route: 065

REACTIONS (5)
  - Leukaemia [Unknown]
  - Incorrect dose administered [Unknown]
  - Product use issue [Unknown]
  - Stoma obstruction [Unknown]
  - Off label use [Unknown]

NARRATIVE: CASE EVENT DATE: 20130122
